FAERS Safety Report 23026432 (Version 1)
Quarter: 2023Q4

REPORT INFORMATION
  Report Type: Spontaneous
  Country: US (occurrence: US)
  Receive Date: 20231004
  Receipt Date: 20231004
  Transmission Date: 20240109
  Serious: Yes (Hospitalization)
  Sender: FDA-Public Use
  Company Number: US-drreddys-LIT/USA/23/0178627

PATIENT
  Age: 50 Year
  Sex: Male

DRUGS (2)
  1. AMLODIPINE MALEATE [Suspect]
     Active Substance: AMLODIPINE MALEATE
     Indication: Hypertension
     Route: 048
  2. AMLODIPINE MALEATE [Suspect]
     Active Substance: AMLODIPINE MALEATE
     Dosage: 4HR AFTER THE FIRST DOSE, HE INGESTED ANOTHER ORAL AMLODIPINE 10MG DOSE, TOTAL DOSE OF 20MG WHICH WA
     Route: 048

REACTIONS (4)
  - Hypotension [Unknown]
  - Bradycardia [Unknown]
  - Accidental overdose [Unknown]
  - Inappropriate schedule of product administration [Unknown]
